FAERS Safety Report 16755208 (Version 1)
Quarter: 2019Q3

REPORT INFORMATION
  Report Type: Report from Study
  Country: US (occurrence: US)
  Receive Date: 20190829
  Receipt Date: 20190829
  Transmission Date: 20191005
  Serious: Yes (Other)
  Sender: FDA-Public Use
  Company Number: US-JNJFOC-20190834729

PATIENT
  Age: 69 Year
  Sex: Male

DRUGS (4)
  1. WARFARIN SODIUM                    /00014804/ [Concomitant]
  2. IMBRUVICA [Suspect]
     Active Substance: IBRUTINIB
     Indication: WALDENSTROM^S MACROGLOBULINAEMIA
     Dosage: 420 MG, QD
     Route: 048
     Dates: start: 201905, end: 20190729
  3. LOSARTAN POTASSIUM. [Concomitant]
     Active Substance: LOSARTAN POTASSIUM
  4. METOPROLOL SUCCINATE. [Concomitant]
     Active Substance: METOPROLOL SUCCINATE

REACTIONS (2)
  - Haemorrhage [Recovering/Resolving]
  - Surgery [Recovering/Resolving]

NARRATIVE: CASE EVENT DATE: 20190802
